FAERS Safety Report 26118255 (Version 1)
Quarter: 2025Q4

REPORT INFORMATION
  Report Type: Spontaneous
  Country: JP (occurrence: JP)
  Receive Date: 20251203
  Receipt Date: 20251203
  Transmission Date: 20260118
  Serious: Yes (Other)
  Sender: BAUSCH AND LOMB
  Company Number: JP-BAUSCH-BH-2025-021607

PATIENT
  Age: 5 Decade
  Sex: Male

DRUGS (3)
  1. BRODALUMAB [Suspect]
     Active Substance: BRODALUMAB
     Indication: Psoriasis
     Route: 058
  2. BRODALUMAB [Suspect]
     Active Substance: BRODALUMAB
     Route: 058
  3. BRODALUMAB [Suspect]
     Active Substance: BRODALUMAB
     Route: 058

REACTIONS (5)
  - Metastases to spine [Unknown]
  - Pyelonephritis [Recovered/Resolved]
  - Sacroiliitis [Unknown]
  - Peripheral swelling [Unknown]
  - Arthralgia [Unknown]
